FAERS Safety Report 4279139-X (Version None)
Quarter: 2004Q1

REPORT INFORMATION
  Report Type: 
  Country: None (occurrence: None)
  Receive Date: 20040126
  Receipt Date: 20040126
  Transmission Date: 20041129
  Serious: Yes (Other)
  Sender: FDA-Public Use
  Company Number: None

PATIENT
  Age: 66 Year
  Sex: Male
  Weight: 81.8 kg

DRUGS (4)
  1. HEPARIN [Suspect]
     Indication: DIAGNOSTIC PROCEDURE
     Dosage: 3400 U X 1
     Dates: start: 20040122
  2. BENADRYL [Concomitant]
  3. FENTANYL [Concomitant]
  4. LIDOCAINE [Concomitant]

REACTIONS (1)
  - ALANINE AMINOTRANSFERASE INCREASED [None]
